FAERS Safety Report 10243250 (Version 1)
Quarter: 2014Q2

REPORT INFORMATION
  Report Type: Spontaneous
  Country: US (occurrence: US)
  Receive Date: 20140618
  Receipt Date: 20140618
  Transmission Date: 20141212
  Serious: Yes (Other)
  Sender: FDA-Public Use
  Company Number: US-SA-2014SA071808

PATIENT
  Sex: Male

DRUGS (2)
  1. LANTUS [Suspect]
     Indication: DIABETES MELLITUS
     Dosage: TREATMENT START DATE: 1995 OR 1996
     Route: 065
  2. LYRICA [Concomitant]
     Route: 048

REACTIONS (5)
  - Road traffic accident [Unknown]
  - Spinal cord injury cervical [Unknown]
  - Hypoaesthesia [Unknown]
  - Asthenia [Unknown]
  - Drug hypersensitivity [Unknown]
